FAERS Safety Report 9790753 (Version 1)
Quarter: 2013Q4

REPORT INFORMATION
  Report Type: Spontaneous
  Country: US (occurrence: US)
  Receive Date: 20131231
  Receipt Date: 20131231
  Transmission Date: 20140711
  Serious: Yes (Other)
  Sender: FDA-Public Use
  Company Number: US-PFIZER INC-2013369225

PATIENT
  Age: 49 Year
  Sex: Female

DRUGS (6)
  1. CISPLATIN [Suspect]
     Indication: OVARIAN EPITHELIAL CANCER
     Dosage: 50 MG/M2, CYCLIC ON DAY 1
  2. CYCLOPHOSPHAMIDE [Concomitant]
     Indication: OVARIAN EPITHELIAL CANCER
     Dosage: 850 MG/M2, CYCLIC ON DAY 1
  3. LORAZEPAM [Concomitant]
     Indication: ANTIEMETIC SUPPORTIVE CARE
     Dosage: 1 MG, CYCLIC BEFORE AND AFTER ADMINISTRATION OF CISPLATIN
  4. DIPHENHYDRAMINE HYDROCHLORIDE [Concomitant]
     Indication: ANTIEMETIC SUPPORTIVE CARE
     Dosage: 50 MG, CYCLIC BEFORE AND AFTER ADMINISTRATION OF CISPLATIN
  5. PROCHLORPERAZINE [Concomitant]
     Indication: ANTIEMETIC SUPPORTIVE CARE
     Dosage: 10 MG, CYCLIC BEFORE AND AFTER ADMINISTRATION OF CISPLATIN
  6. DEXAMETHASONE [Concomitant]
     Indication: ANTIEMETIC SUPPORTIVE CARE
     Dosage: 10 MG, CYCLIC BEFORE AND AFTER ADMINISTRATION OF CISPLATIN
     Route: 042

REACTIONS (7)
  - Dermatitis exfoliative [Recovering/Resolving]
  - Pancytopenia [Recovered/Resolved]
  - Disseminated intravascular coagulation [Recovered/Resolved]
  - Anaphylactic reaction [Unknown]
  - Necrosis ischaemic [Unknown]
  - Toxic epidermal necrolysis [Unknown]
  - Erythema multiforme [Recovering/Resolving]
